FAERS Safety Report 7120000-0 (Version None)
Quarter: 2010Q4

REPORT INFORMATION
  Report Type: 
  Country: None (occurrence: None)
  Receive Date: 20101123
  Receipt Date: 20101116
  Transmission Date: 20110411
  Serious: Yes (Other)
  Sender: FDA-Public Use
  Company Number: IE-PFIZER INC-2010150585

PATIENT

DRUGS (1)
  1. LYRICA [Suspect]
     Indication: RADICULOPATHY
     Dosage: 25 MG, 2X/DAY
     Dates: start: 20101101

REACTIONS (1)
  - DISSOCIATION [None]
